FAERS Safety Report 4353843-7 (Version None)
Quarter: 2004Q2

REPORT INFORMATION
  Report Type: 
  Country: None (occurrence: None)
  Receive Date: 20040430
  Receipt Date: 20040421
  Transmission Date: 20050107
  Serious: Yes (Other)
  Sender: FDA-Public Use
  Company Number: 2004-04-0664

PATIENT
  Age: 35 Year
  Sex: Male

DRUGS (2)
  1. PEG-INTERFERON ALFA-2B INJECTABLE POWDER [Suspect]
     Indication: CHRONIC HEPATITIS
     Dosage: SUBCUTANEOUS
     Route: 058
     Dates: start: 20031201
  2. RIBAVIRIN [Suspect]
     Indication: HEPATITIS C
     Dosage: ORAL
     Route: 048
     Dates: start: 20031201

REACTIONS (6)
  - ABNORMAL BEHAVIOUR [None]
  - AGGRESSION [None]
  - ALOPECIA [None]
  - COGNITIVE DISORDER [None]
  - PARANOIA [None]
  - TREATMENT NONCOMPLIANCE [None]
